FAERS Safety Report 5941803-1 (Version None)
Quarter: 2008Q4

REPORT INFORMATION
  Report Type: 
  Country: None (occurrence: None)
  Receive Date: 20081105
  Receipt Date: 20081101
  Transmission Date: 20090506
  Serious: Yes (Death)
  Sender: FDA-Public Use
  Company Number: PHHY2008BR26852

PATIENT
  Age: 63 Year
  Sex: Male

DRUGS (1)
  1. GALVUS MET COMBIPACK [Suspect]
     Dosage: 50/500 MG

REACTIONS (1)
  - DEATH [None]
